FAERS Safety Report 10047984 (Version 2)
Quarter: 2014Q2

REPORT INFORMATION
  Report Type: Spontaneous
  Country: US (occurrence: US)
  Receive Date: 20140331
  Receipt Date: 20140603
  Transmission Date: 20141212
  Serious: No
  Sender: FDA-Public Use
  Company Number: US-PFIZER INC-2014090353

PATIENT
  Age: 62 Year
  Sex: Female
  Weight: 80.3 kg

DRUGS (3)
  1. ZOLOFT [Suspect]
     Indication: PANIC DISORDER
     Dosage: 150 MG, DAILY, BEFORE GOING TO BED
     Dates: start: 199912
  2. SYNTHROID [Concomitant]
     Indication: GOITRE
     Dosage: 50 UG, DAILY
  3. LYRICA [Concomitant]
     Indication: FIBROMYALGIA
     Dosage: 75 MG, DAILY

REACTIONS (1)
  - Drug ineffective [Unknown]
